FAERS Safety Report 6047148-6 (Version None)
Quarter: 2009Q1

REPORT INFORMATION
  Report Type: 
  Country: None (occurrence: None)
  Receive Date: 20090122
  Receipt Date: 20090114
  Transmission Date: 20090719
  Serious: Yes (Hospitalization)
  Sender: FDA-Public Use
  Company Number: PHHY2009MX01481

PATIENT

DRUGS (1)
  1. ACLASTA [Suspect]
     Indication: OSTEOPOROSIS
     Dosage: 5MG/100ML ONCE A YEAR
     Route: 042
     Dates: start: 20081101

REACTIONS (5)
  - CHILLS [None]
  - EYE INFLAMMATION [None]
  - FEELING COLD [None]
  - HEADACHE [None]
  - HYPERTENSIVE CRISIS [None]
